FAERS Safety Report 10191353 (Version 1)
Quarter: 2014Q2

REPORT INFORMATION
  Report Type: Spontaneous
  Country: VE (occurrence: VE)
  Receive Date: 20140523
  Receipt Date: 20140523
  Transmission Date: 20141212
  Serious: Yes (Other)
  Sender: FDA-Public Use
  Company Number: VE-MERCK-1405VEN011097

PATIENT
  Age: 33 Year
  Sex: Female

DRUGS (2)
  1. INVANZ [Suspect]
     Indication: ANTIBIOTIC THERAPY
     Dosage: TOTAL DAILY DOSE 1 G
     Route: 042
  2. ANESTHETIC (UNSPECIFIED) [Concomitant]
     Route: 008

REACTIONS (3)
  - Sneezing [Recovered/Resolved]
  - Rash generalised [Recovered/Resolved]
  - Pruritus [Recovered/Resolved]
